FAERS Safety Report 25095277 (Version 1)
Quarter: 2025Q1

REPORT INFORMATION
  Report Type: Spontaneous
  Country: US (occurrence: US)
  Receive Date: 20250319
  Receipt Date: 20250319
  Transmission Date: 20250409
  Serious: No
  Sender: GALDERMA
  Company Number: US-GALDERMA-US2025002449

PATIENT

DRUGS (2)
  1. DIFFERIN GEL [Suspect]
     Active Substance: ADAPALENE
     Indication: Acne
     Route: 061
     Dates: end: 20250210
  2. PANOXYL [Concomitant]
     Active Substance: BENZOYL PEROXIDE
     Indication: Therapeutic skin care topical
     Route: 065

REACTIONS (9)
  - Purulent discharge [Not Recovered/Not Resolved]
  - Cheilitis [Recovered/Resolved]
  - Lip scab [Recovered/Resolved]
  - Lip dry [Recovered/Resolved]
  - Scab [Not Recovered/Not Resolved]
  - Dry skin [Not Recovered/Not Resolved]
  - Pruritus [Not Recovered/Not Resolved]
  - Skin swelling [Not Recovered/Not Resolved]
  - Rash [Not Recovered/Not Resolved]

NARRATIVE: CASE EVENT DATE: 20241114
